FAERS Safety Report 20080417 (Version 1)
Quarter: 2021Q4

REPORT INFORMATION
  Report Type: Spontaneous
  Country: US (occurrence: None)
  Receive Date: 20211116
  Receipt Date: 20211116
  Transmission Date: 20220303
  Serious: No
  Sender: FDA-Public Use
  Company Number: None

PATIENT
  Sex: Male
  Weight: 61.65 kg

DRUGS (8)
  1. ABIRATERONE [Suspect]
     Active Substance: ABIRATERONE
     Indication: Prostate cancer
     Dosage: FREQUENCY : DAILY;?
     Route: 048
     Dates: start: 20210923
  2. HEPARIN [Concomitant]
     Active Substance: HEPARIN SODIUM
  3. LORAZEPAM [Concomitant]
     Active Substance: LORAZEPAM
  4. METOPROLOL [Concomitant]
     Active Substance: METOPROLOL
  5. OXYCODONE [Concomitant]
     Active Substance: OXYCODONE
  6. PREDNISONE [Concomitant]
     Active Substance: PREDNISONE
  7. TESSALON [Concomitant]
     Active Substance: BENZONATATE
  8. XARELTO [Concomitant]
     Active Substance: RIVAROXABAN

REACTIONS (1)
  - Neuropathy peripheral [None]
